FAERS Safety Report 11693828 (Version 1)
Quarter: 2015Q4

REPORT INFORMATION
  Report Type: Report from Study
  Country: JP (occurrence: JP)
  Receive Date: 20151103
  Receipt Date: 20151103
  Transmission Date: 20160304
  Serious: Yes (Hospitalization)
  Sender: FDA-Public Use
  Company Number: JP-WARNER CHILCOTT 2015-001252

PATIENT
  Age: 74 Year
  Sex: Male

DRUGS (3)
  1. ACTONEL [Suspect]
     Active Substance: RISEDRONATE SODIUM
     Indication: OSTEOPOROSIS
     Route: 048
     Dates: start: 20140617, end: 20150604
  2. LEVOFLOXACIN. [Suspect]
     Active Substance: LEVOFLOXACIN
     Dates: start: 20150605, end: 20150612
  3. CALCIUM LACTATE [Concomitant]
     Active Substance: CALCIUM LACTATE
     Dates: start: 20140509, end: 20150604

REACTIONS (8)
  - Pruritus [None]
  - Local swelling [None]
  - Eczema [None]
  - Hepatic function abnormal [None]
  - Liver function test abnormal [None]
  - Acute febrile neutrophilic dermatosis [None]
  - Pyrexia [None]
  - Rash [None]
